FAERS Safety Report 4868939-0 (Version None)
Quarter: 2005Q4

REPORT INFORMATION
  Report Type: 
  Country: None (occurrence: None)
  Receive Date: 20051223
  Receipt Date: 20051214
  Transmission Date: 20060501
  Serious: Yes (Other)
  Sender: FDA-Public Use
  Company Number: 220430

PATIENT
  Age: 60 Year
  Sex: Male

DRUGS (1)
  1. XOLAIR [Suspect]
     Indication: ASTHMA
     Dosage: 375 MG SUBCUTANEOUS
     Route: 058
     Dates: start: 20050822

REACTIONS (8)
  - ASTHMA [None]
  - CONDITION AGGRAVATED [None]
  - COUGH [None]
  - INCREASED UPPER AIRWAY SECRETION [None]
  - MALAISE [None]
  - NON-CARDIAC CHEST PAIN [None]
  - PRODUCTIVE COUGH [None]
  - SPUTUM DISCOLOURED [None]
